FAERS Safety Report 25013623 (Version 1)
Quarter: 2025Q1

REPORT INFORMATION
  Report Type: Spontaneous
  Country: US (occurrence: US)
  Receive Date: 20250226
  Receipt Date: 20250226
  Transmission Date: 20250408
  Serious: No
  Sender: UCB
  Company Number: US-UCBSA-2023057152

PATIENT
  Sex: Female

DRUGS (1)
  1. KEPPRA [Suspect]
     Active Substance: LEVETIRACETAM
     Indication: Seizure
     Dates: start: 2008

REACTIONS (4)
  - Aura [Unknown]
  - Prescribed overdose [Unknown]
  - Intentional product use issue [Unknown]
  - Inability to afford medication [Unknown]
